FAERS Safety Report 10314610 (Version 2)
Quarter: 2014Q3

REPORT INFORMATION
  Report Type: Spontaneous
  Country: AU (occurrence: AU)
  Receive Date: 20140718
  Receipt Date: 20140912
  Transmission Date: 20150326
  Serious: Yes (Other)
  Sender: FDA-Public Use
  Company Number: AU-SA-2014SA093902

PATIENT
  Age: 88 Year
  Sex: Male

DRUGS (9)
  1. AMETHOCAINE [Concomitant]
     Indication: ANAESTHESIA
     Dosage: 1 PERCENT
     Route: 061
  2. RANIBIZUMAB [Concomitant]
     Active Substance: RANIBIZUMAB
     Route: 031
  3. AFLIBERCEPT [Suspect]
     Active Substance: AFLIBERCEPT
     Indication: PRODUCT USED FOR UNKNOWN INDICATION
     Dosage: DOSE: 2 MG IN 0.05 ML WAS INJECTED WITH A 30 G NEEDLE
     Route: 031
     Dates: start: 201303
  4. LATANOPROST. [Concomitant]
     Active Substance: LATANOPROST
     Dosage: 0.005 PERCENT IN THE LEFT EYE
  5. TIMOLOL [Concomitant]
     Active Substance: TIMOLOL
     Dosage: 0.5 PERCENT IN THE LEFT EYE
  6. BRINZOLAMIDE [Concomitant]
     Active Substance: BRINZOLAMIDE
     Dosage: 1PERCENT
  7. RANIBIZUMAB [Concomitant]
     Active Substance: RANIBIZUMAB
     Dosage: IN LEFT EYE EVERY 4-6 WEEKS
  8. POVIDONE IODINE [Concomitant]
     Active Substance: POVIDONE-IODINE
     Dosage: 5 PERCENT
  9. CHLORAMPHENICOL [Concomitant]
     Active Substance: CHLORAMPHENICOL
     Dosage: ONE DROP IN THE LEFT EYE

REACTIONS (5)
  - Off label use [Unknown]
  - Non-infectious endophthalmitis [Recovered/Resolved]
  - Vitreous disorder [Recovered/Resolved]
  - Uveitis [Recovered/Resolved]
  - Visual acuity reduced [Recovered/Resolved]

NARRATIVE: CASE EVENT DATE: 2013
